FAERS Safety Report 16765240 (Version 1)
Quarter: 2019Q3

REPORT INFORMATION
  Report Type: Spontaneous
  Country: PL (occurrence: PL)
  Receive Date: 20190903
  Receipt Date: 20190903
  Transmission Date: 20191005
  Serious: Yes (Other)
  Sender: FDA-Public Use
  Company Number: PL-ASTRAZENECA-2019SF22135

PATIENT
  Age: 25 Year
  Sex: Female

DRUGS (2)
  1. LORATADYNA [Concomitant]
     Indication: ANTIALLERGIC THERAPY
     Dosage: DOSE NOT SPECIFIED
  2. NEBBUD [Suspect]
     Active Substance: BUDESONIDE
     Indication: COUGH
     Dosage: 1 MG,1 AMPOULE/24H/2 DAYS
     Route: 055

REACTIONS (9)
  - Swelling of eyelid [Recovering/Resolving]
  - Throat irritation [Recovering/Resolving]
  - Rash [Recovering/Resolving]
  - Dyspnoea [Recovering/Resolving]
  - Swelling [Recovering/Resolving]
  - Epistaxis [Recovering/Resolving]
  - Lip swelling [Recovering/Resolving]
  - Pruritus [Recovering/Resolving]
  - Renal pain [Recovering/Resolving]
